FAERS Safety Report 20068071 (Version 1)
Quarter: 2021Q4

REPORT INFORMATION
  Report Type: Spontaneous
  Country: US (occurrence: None)
  Receive Date: 20211112
  Receipt Date: 20211112
  Transmission Date: 20220303
  Serious: Yes (Hospitalization)
  Sender: FDA-Public Use
  Company Number: None

PATIENT
  Age: 64 Year
  Sex: Male
  Weight: 105 kg

DRUGS (2)
  1. DAPTOMYCIN [Suspect]
     Active Substance: DAPTOMYCIN
     Indication: Osteomyelitis
     Dosage: OTHER STRENGTH : 500MG/VIL;?
     Dates: start: 20210408, end: 20210506
  2. DAPTOMYCIN [Suspect]
     Active Substance: DAPTOMYCIN
     Indication: Staphylococcal infection

REACTIONS (2)
  - Eosinophilic pneumonia [None]
  - Sinus congestion [None]

NARRATIVE: CASE EVENT DATE: 20210505
